FAERS Safety Report 18037082 (Version 3)
Quarter: 2024Q4

REPORT INFORMATION
  Report Type: Spontaneous
  Country: PT (occurrence: PT)
  Receive Date: 20200717
  Receipt Date: 20241231
  Transmission Date: 20250114
  Serious: Yes (Other)
  Sender: MYLAN
  Company Number: None

PATIENT
  Age: 22 Year
  Sex: Female

DRUGS (15)
  1. GEMCITABINE [Suspect]
     Active Substance: GEMCITABINE
     Indication: Hodgkin^s disease
     Dosage: GVD
     Route: 065
     Dates: start: 201705
  2. BLEOMYCIN [Suspect]
     Active Substance: BLEOMYCIN SULFATE
     Indication: Hodgkin^s disease
     Dosage: ABVD REGIMEN
     Route: 065
     Dates: start: 201403
  3. BLEOMYCIN [Suspect]
     Active Substance: BLEOMYCIN SULFATE
     Dosage: ABVD REGIMEN
     Route: 065
     Dates: start: 201611
  4. BLEOMYCIN [Suspect]
     Active Substance: BLEOMYCIN SULFATE
     Dosage: ABVD REGIMEN
     Route: 065
     Dates: start: 201612
  5. DOXORUBICIN HYDROCHLORIDE [Suspect]
     Active Substance: DOXORUBICIN HYDROCHLORIDE
     Indication: Hodgkin^s disease
     Dosage: ABVD REGIMEN
     Route: 065
     Dates: start: 201403
  6. DOXORUBICIN HYDROCHLORIDE [Suspect]
     Active Substance: DOXORUBICIN HYDROCHLORIDE
     Dosage: ABVD REGIMEN
     Route: 065
     Dates: start: 201611
  7. DOXORUBICIN HYDROCHLORIDE [Suspect]
     Active Substance: DOXORUBICIN HYDROCHLORIDE
     Dosage: ABVD REGIMEN
     Route: 065
     Dates: start: 201612
  8. DOXORUBICIN HYDROCHLORIDE [Suspect]
     Active Substance: DOXORUBICIN HYDROCHLORIDE
     Dosage: GVD (GEMCITABINE, VINORELBINE AND LIPOSOMAL DOXORUBICIN)
     Route: 065
     Dates: start: 201705
  9. VINORELBINE TARTRATE [Suspect]
     Active Substance: VINORELBINE TARTRATE
     Indication: Hodgkin^s disease
     Dosage: GVD REGIMEN
     Route: 065
     Dates: start: 201705
  10. VINBLASTINE SULFATE [Suspect]
     Active Substance: VINBLASTINE SULFATE
     Indication: Hodgkin^s disease
     Dosage: ABVD REGIMEN
     Route: 065
     Dates: start: 201403
  11. VINBLASTINE SULFATE [Suspect]
     Active Substance: VINBLASTINE SULFATE
     Dosage: ABVD REGIMEN
     Route: 065
     Dates: start: 201611
  12. VINBLASTINE SULFATE [Suspect]
     Active Substance: VINBLASTINE SULFATE
     Dosage: ABVD REGIMEN
     Route: 065
     Dates: start: 201612
  13. DACARBAZINE [Suspect]
     Active Substance: DACARBAZINE
     Indication: Hodgkin^s disease
     Dosage: ABVD REGIMEN
     Route: 065
     Dates: start: 201403
  14. DACARBAZINE [Suspect]
     Active Substance: DACARBAZINE
     Dosage: ABVD REGIMEN
     Route: 065
     Dates: start: 201611
  15. DACARBAZINE [Suspect]
     Active Substance: DACARBAZINE
     Dosage: ABVD REGIMEN
     Route: 065
     Dates: start: 201612

REACTIONS (3)
  - Hypersensitivity [Unknown]
  - Off label use [Unknown]
  - Product use in unapproved indication [Unknown]
